FAERS Safety Report 9842480 (Version 6)
Quarter: 2014Q2

REPORT INFORMATION
  Report Type: Spontaneous
  Country: US (occurrence: US)
  Receive Date: 20140124
  Receipt Date: 20140520
  Transmission Date: 20141212
  Serious: Yes (Hospitalization, Disabling, Other)
  Sender: FDA-Public Use
  Company Number: US-009507513-1205USA00956

PATIENT
  Sex: Female
  Weight: 70.75 kg

DRUGS (7)
  1. FOSAMAX [Suspect]
     Indication: OSTEOPOROSIS
     Dosage: 70 MG, QW
     Route: 048
     Dates: start: 2001, end: 2010
  2. ALENDRONATE SODIUM [Suspect]
     Dosage: 70 MG, UNK
     Route: 048
  3. CALCIUM (UNSPECIFIED) [Concomitant]
     Dosage: 600 MG, BID
     Dates: start: 1996
  4. VITAMIN E [Concomitant]
     Dosage: 400 IU, QD
     Dates: start: 1996
  5. VITAMIN D (UNSPECIFIED) [Concomitant]
     Dosage: 400 IU, QD
     Dates: start: 1996
  6. VITAMINS (UNSPECIFIED) [Concomitant]
     Dosage: ONCE A DAY
     Dates: start: 1996
  7. BENEFIBER [Concomitant]
     Dosage: 3X A DAY
     Dates: start: 1996

REACTIONS (53)
  - Femur fracture [Not Recovered/Not Resolved]
  - Femur fracture [Recovered/Resolved]
  - Low turnover osteopathy [Not Recovered/Not Resolved]
  - Osteoporosis [Not Recovered/Not Resolved]
  - Stress fracture [Not Recovered/Not Resolved]
  - Intramedullary rod insertion [Recovered/Resolved]
  - Intramedullary rod insertion [Unknown]
  - Medical device removal [Unknown]
  - Medical device implantation [Unknown]
  - Fracture nonunion [Recovered/Resolved]
  - Medical device removal [Unknown]
  - Medical device implantation [Unknown]
  - Bone graft [Unknown]
  - Rib fracture [Unknown]
  - Asthma [Unknown]
  - Bronchiectasis [Not Recovered/Not Resolved]
  - Anaemia postoperative [Unknown]
  - Haemoglobin decreased [Unknown]
  - Haematocrit decreased [Unknown]
  - Haematocrit decreased [Unknown]
  - Urinary tract obstruction [Unknown]
  - Colon adenoma [Unknown]
  - Diverticulum [Unknown]
  - Contusion [Unknown]
  - Electrocardiogram Q waves [Unknown]
  - Electrocardiogram T wave biphasic [Unknown]
  - Pneumonia [Unknown]
  - Chronic obstructive pulmonary disease [Unknown]
  - Appendicectomy [Unknown]
  - Wrist fracture [Unknown]
  - Adverse event [Unknown]
  - Bronchiolitis [Unknown]
  - Arthritis [Unknown]
  - Tremor [Unknown]
  - Depression [Unknown]
  - Anaemia postoperative [Unknown]
  - Kyphosis [Unknown]
  - Osteoarthritis [Unknown]
  - Osteoarthritis [Unknown]
  - Anxiety [Unknown]
  - Nocturia [Unknown]
  - Contusion [Unknown]
  - Spinal osteoarthritis [Unknown]
  - Sciatica [Recovered/Resolved]
  - Lordosis [Unknown]
  - Exostosis [Unknown]
  - Nausea [Unknown]
  - Pain in extremity [Unknown]
  - Pain in extremity [Unknown]
  - Muscle spasms [Unknown]
  - Gastrooesophageal reflux disease [Unknown]
  - Muscle spasms [Unknown]
  - Back pain [Unknown]
